FAERS Safety Report 12995920 (Version 1)
Quarter: 2016Q4

REPORT INFORMATION
  Report Type: Spontaneous
  Country: NL (occurrence: NL)
  Receive Date: 20161202
  Receipt Date: 20161202
  Transmission Date: 20170207
  Serious: Yes (Disabling, Other)
  Sender: FDA-Public Use
  Company Number: NL-ELI_LILLY_AND_COMPANY-US201611009039

PATIENT
  Sex: Male
  Weight: 86 kg

DRUGS (17)
  1. DULOXETINE HYDROCHLORIDE. [Suspect]
     Active Substance: DULOXETINE HYDROCHLORIDE
     Indication: POLYNEUROPATHY
     Dosage: 30 MG, UNKNOWN
     Route: 048
     Dates: start: 20160816, end: 20160826
  2. FRAXODI [Concomitant]
     Active Substance: NADROPARIN CALCIUM
     Indication: CORONARY ARTERY BYPASS
     Dosage: UNK, UNKNOWN
     Route: 065
     Dates: start: 20160308
  3. COLECALCIFEROL [Concomitant]
     Active Substance: CHOLECALCIFEROL
     Indication: PROPHYLAXIS
     Dosage: UNK, UNKNOWN
     Route: 065
  4. NAPROXEN. [Concomitant]
     Active Substance: NAPROXEN
     Indication: PAIN
     Dosage: 220 MG, UNKNOWN
     Route: 048
     Dates: start: 20160829
  5. DULOXETINE HYDROCHLORIDE. [Suspect]
     Active Substance: DULOXETINE HYDROCHLORIDE
     Indication: NEURALGIA
  6. EZETIMIBE. [Concomitant]
     Active Substance: EZETIMIBE
     Indication: TYPE IIA HYPERLIPIDAEMIA
     Dosage: UNK, UNKNOWN
     Route: 048
     Dates: start: 20150605
  7. GLICLAZIDE [Concomitant]
     Active Substance: GLICLAZIDE
     Indication: TYPE 2 DIABETES MELLITUS
     Dosage: UNK, UNKNOWN
     Route: 048
     Dates: start: 20110428
  8. SPIRONOLACTON [Concomitant]
     Active Substance: SPIRONOLACTONE
     Indication: HYPERTENSION
     Dosage: UNK, UNKNOWN
     Route: 048
     Dates: start: 20041227
  9. CLONAZEPAM. [Concomitant]
     Active Substance: CLONAZEPAM
     Indication: SLEEP DISORDER
     Dosage: UNK, UNKNOWN
     Route: 048
     Dates: start: 20141118
  10. CAPTOPRIL. [Concomitant]
     Active Substance: CAPTOPRIL
     Indication: HYPERTENSION
     Dosage: UNK, UNKNOWN
     Route: 048
     Dates: start: 20060720
  11. PREDNISOLONE. [Concomitant]
     Active Substance: PREDNISOLONE
     Indication: GOUT
     Dosage: UNK, UNKNOWN
     Route: 048
     Dates: start: 20121229
  12. ALLOPURINOL. [Concomitant]
     Active Substance: ALLOPURINOL
     Indication: GOUT
     Dosage: UNK, UNKNOWN
     Route: 048
     Dates: start: 20151027
  13. BENZBROMARON [Concomitant]
     Indication: GOUT
     Dosage: UNK, UNKNOWN
     Route: 048
     Dates: start: 20141118
  14. FUROSEMIDE. [Concomitant]
     Active Substance: FUROSEMIDE
     Indication: NEPHROPATHY
     Dosage: UNK, UNKNOWN
     Route: 048
     Dates: start: 19910716
  15. RISEDRONIC ACID [Concomitant]
     Active Substance: RISEDRONIC ACID
     Indication: OSTEOARTHRITIS
     Dosage: UNK, UNKNOWN
     Route: 048
     Dates: start: 20140303
  16. ATORVASTATIN [Concomitant]
     Active Substance: ATORVASTATIN
     Indication: TYPE IIA HYPERLIPIDAEMIA
     Dosage: 40 MG, QD
     Route: 048
     Dates: start: 20141018
  17. ATENOLOL. [Concomitant]
     Active Substance: ATENOLOL
     Indication: PRODUCT USED FOR UNKNOWN INDICATION
     Dosage: UNK, UNKNOWN
     Route: 048
     Dates: start: 20101102, end: 20160909

REACTIONS (10)
  - Hyperhidrosis [Unknown]
  - Neurodegenerative disorder [Unknown]
  - Feeling cold [Unknown]
  - Fatigue [Unknown]
  - Weight decreased [Unknown]
  - Angina pectoris [Unknown]
  - Neuralgia [Not Recovered/Not Resolved]
  - Decreased appetite [Unknown]
  - Hypoaesthesia [Unknown]
  - Fall [Unknown]

NARRATIVE: CASE EVENT DATE: 20160816
